FAERS Safety Report 11805007 (Version 1)
Quarter: 2015Q4

REPORT INFORMATION
  Report Type: Spontaneous
  Country: US (occurrence: US)
  Receive Date: 20151205
  Receipt Date: 20151205
  Transmission Date: 20160305
  Serious: No
  Sender: FDA-Public Use
  Company Number: US-BAUSCH-BL-2014-011363

PATIENT
  Age: 75 Year
  Sex: Female

DRUGS (2)
  1. XENAZINE [Suspect]
     Active Substance: TETRABENAZINE
     Indication: PRODUCT USED FOR UNKNOWN INDICATION
     Route: 048
     Dates: start: 20141123
  2. XENAZINE [Suspect]
     Active Substance: TETRABENAZINE
     Dosage: XENAZINE 25MG 1 TABLET IN THE MORNING, 1/2 TABLET IN THE AFTERNOON, AND 1/2 TABLET IN THE EVENING.
     Route: 048

REACTIONS (3)
  - Dizziness [Not Recovered/Not Resolved]
  - Feeling jittery [Not Recovered/Not Resolved]
  - Diarrhoea [Not Recovered/Not Resolved]

NARRATIVE: CASE EVENT DATE: 20141209
